FAERS Safety Report 9892906 (Version 3)
Quarter: 2015Q1

REPORT INFORMATION
  Report Type: Report from Study
  Country: BR (occurrence: BR)
  Receive Date: 20140213
  Receipt Date: 20150311
  Transmission Date: 20150721
  Serious: Yes (Hospitalization)
  Sender: FDA-Public Use
  Company Number: BR-BIOGENIDEC-2014BI013315

PATIENT
  Age: 31 Year
  Sex: Female

DRUGS (3)
  1. SELENE (CYPROTERONE ACETATE + ETHINYLESTRADIOL) [Concomitant]
     Indication: ACNE
     Dates: end: 201312
  2. AVONEX [Suspect]
     Active Substance: INTERFERON BETA-1A
     Indication: MULTIPLE SCLEROSIS
     Route: 030
     Dates: start: 20131009, end: 20140115
  3. OMEPRAZOLE. [Concomitant]
     Active Substance: OMEPRAZOLE

REACTIONS (14)
  - Vision blurred [Recovered/Resolved with Sequelae]
  - Epigastric discomfort [Not Recovered/Not Resolved]
  - Yellow skin [Not Recovered/Not Resolved]
  - Visual impairment [Unknown]
  - Hepatic congestion [Not Recovered/Not Resolved]
  - Obstruction [Not Recovered/Not Resolved]
  - Vomiting [Not Recovered/Not Resolved]
  - Asthenia [Recovered/Resolved]
  - Pallor [Unknown]
  - Multiple sclerosis relapse [Recovered/Resolved]
  - Pyrexia [Recovered/Resolved]
  - Drug-induced liver injury [Recovered/Resolved]
  - Optic nerve disorder [Not Recovered/Not Resolved]
  - General symptom [Unknown]

NARRATIVE: CASE EVENT DATE: 201311
